FAERS Safety Report 13903708 (Version 10)
Quarter: 2017Q4

REPORT INFORMATION
  Report Type: Report from Study
  Country: US (occurrence: US)
  Receive Date: 20170824
  Receipt Date: 20171218
  Transmission Date: 20180320
  Serious: Yes (Other)
  Sender: FDA-Public Use
  Company Number: US-GILEAD-2017-0285379

PATIENT
  Age: 37 Year
  Sex: Female

DRUGS (7)
  1. UPTRAVI [Suspect]
     Active Substance: SELEXIPAG
     Indication: PRODUCT USED FOR UNKNOWN INDICATION
     Route: 065
  2. XARELTO [Concomitant]
     Active Substance: RIVAROXABAN
  3. UPTRAVI [Suspect]
     Active Substance: SELEXIPAG
     Dosage: 800 UG, BID
     Route: 065
  4. AMBRISENTAN [Suspect]
     Active Substance: AMBRISENTAN
     Indication: PRODUCT USED FOR UNKNOWN INDICATION
     Dosage: 5 MG, QD
     Route: 065
     Dates: start: 20131011
  5. TYVASO [Suspect]
     Active Substance: TREPROSTINIL
     Indication: PRODUCT USED FOR UNKNOWN INDICATION
     Route: 065
  6. ADCIRCA [Concomitant]
     Active Substance: TADALAFIL
  7. NIFEDIPINE. [Concomitant]
     Active Substance: NIFEDIPINE

REACTIONS (15)
  - Blindness [Not Recovered/Not Resolved]
  - Eye pain [Not Recovered/Not Resolved]
  - Peripheral swelling [Not Recovered/Not Resolved]
  - Diarrhoea [Not Recovered/Not Resolved]
  - Nausea [Not Recovered/Not Resolved]
  - Headache [Not Recovered/Not Resolved]
  - Chills [Not Recovered/Not Resolved]
  - Dyspnoea [Unknown]
  - Hepatic fibrosis [Unknown]
  - Pain in jaw [Not Recovered/Not Resolved]
  - Pulmonary arterial hypertension [Unknown]
  - Fatigue [Not Recovered/Not Resolved]
  - Myalgia [Not Recovered/Not Resolved]
  - Swelling [Not Recovered/Not Resolved]
  - Arthralgia [Not Recovered/Not Resolved]

NARRATIVE: CASE EVENT DATE: 20170813
